FAERS Safety Report 16173007 (Version 6)
Quarter: 2021Q4

REPORT INFORMATION
  Report Type: Spontaneous
  Country: US (occurrence: US)
  Receive Date: 20190409
  Receipt Date: 20211214
  Transmission Date: 20220303
  Serious: No
  Sender: FDA-Public Use
  Company Number: US-PFIZER INC-2019146656

PATIENT
  Age: 40 Year
  Sex: Female

DRUGS (3)
  1. RELPAX [Suspect]
     Active Substance: ELETRIPTAN HYDROBROMIDE
     Indication: Headache
     Dosage: 20 MG, UNK
     Route: 048
  2. RELPAX [Suspect]
     Active Substance: ELETRIPTAN HYDROBROMIDE
     Dosage: 80 MG, WEEKLY (TWO 40 MG EVERY WEEK, PRN)
  3. RELPAX [Suspect]
     Active Substance: ELETRIPTAN HYDROBROMIDE
     Dosage: 40 MG (1 PO (ORAL) ONSET HA NO MORE THAN 4/WK)
     Route: 048

REACTIONS (3)
  - Migraine [Unknown]
  - Off label use [Unknown]
  - Product prescribing error [Unknown]
